FAERS Safety Report 19495389 (Version 1)
Quarter: 2021Q3

REPORT INFORMATION
  Report Type: Report from Study
  Country: None (occurrence: US)
  Receive Date: 20210706
  Receipt Date: 20210706
  Transmission Date: 20211014
  Serious: Yes (Hospitalization, Other)
  Sender: FDA-Public Use
  Company Number: US-ABBVIE-21K-163-3975280-00

PATIENT
  Sex: Female

DRUGS (1)
  1. HUMIRA [Suspect]
     Active Substance: ADALIMUMAB
     Indication: CROHN^S DISEASE
     Route: 058

REACTIONS (5)
  - Blood count abnormal [Unknown]
  - Gastrointestinal oedema [Unknown]
  - Large intestinal haemorrhage [Recovering/Resolving]
  - Blood magnesium decreased [Recovering/Resolving]
  - Blood sodium decreased [Recovering/Resolving]
